FAERS Safety Report 7058841-0 (Version None)
Quarter: 2010Q4

REPORT INFORMATION
  Report Type: 
  Country: None (occurrence: None)
  Receive Date: 20101022
  Receipt Date: 20101013
  Transmission Date: 20110411
  Serious: Yes (Other)
  Sender: FDA-Public Use
  Company Number: FI-GENENTECH-308162

PATIENT
  Age: 50 Year
  Sex: Female

DRUGS (1)
  1. MABTHERA [Suspect]
     Indication: MUSCULOSKELETAL PAIN
     Dosage: UNK
     Route: 065

REACTIONS (1)
  - MALIGNANT NEOPLASM OF EYELID [None]
